FAERS Safety Report 8874025 (Version 2)
Quarter: 2012Q4

REPORT INFORMATION
  Report Type: 
  Country: NL (occurrence: NL)
  Receive Date: 20121023
  Receipt Date: 20121122
  Transmission Date: 20130627
  Serious: Yes (Hospitalization)
  Sender: FDA-Public Use
  Company Number: NL-PFIZER INC-2012258873

PATIENT
  Age: 81 Year
  Sex: Female

DRUGS (5)
  1. GENOTROPIN [Suspect]
     Indication: GROWTH HORMONE DEFICIENCY
     Dosage: 0.4 mg/day, 7 injections/week
     Route: 058
     Dates: start: 20010323
  2. HYDROCORTISONE [Concomitant]
     Indication: ACTH DECREASED
     Dosage: UNK
     Dates: start: 19981124
  3. RANITIDINE [Concomitant]
     Indication: STOMACH FUNCTION DISORDER
     Dosage: UNK
     Dates: start: 19991005
  4. COLECALCIFEROL [Concomitant]
     Indication: UNSPECIFIED VITAMIN D DEFICIENCY
     Dosage: UNK
     Dates: start: 20000913
  5. SINTROM MITIS [Concomitant]
     Indication: COAGULATION DISORDER NOS
     Dosage: UNK
     Dates: start: 20000913

REACTIONS (1)
  - Osteoarthritis [Recovered/Resolved]
